FAERS Safety Report 22257100 (Version 1)
Quarter: 2023Q2

REPORT INFORMATION
  Report Type: Spontaneous
  Country: NO (occurrence: None)
  Receive Date: 20230427
  Receipt Date: 20230427
  Transmission Date: 20230721
  Serious: Yes (Life-Threatening, Other)
  Sender: FDA-Public Use
  Company Number: None

PATIENT
  Age: 33 Year
  Sex: Female
  Weight: 65 kg

DRUGS (2)
  1. CHORIOGONADOTROPIN ALFA [Suspect]
     Active Substance: CHORIOGONADOTROPIN ALFA
     Indication: Infertility
     Dosage: 3
     Route: 058
     Dates: start: 20211122, end: 202202
  2. LETROZOLE [Suspect]
     Active Substance: LETROZOLE
     Indication: Infertility
     Route: 048
     Dates: start: 202109, end: 202202

REACTIONS (9)
  - Suicide attempt [Unknown]
  - Personality change [Unknown]
  - Palpitations [Unknown]
  - Decreased appetite [Unknown]
  - Weight decreased [Unknown]
  - Dysmenorrhoea [Unknown]
  - Somnolence [Unknown]
  - Anxiety [Unknown]
  - Pain [Unknown]
